FAERS Safety Report 25763168 (Version 1)
Quarter: 2025Q3

REPORT INFORMATION
  Report Type: Spontaneous
  Country: CN (occurrence: CN)
  Receive Date: 20250905
  Receipt Date: 20250905
  Transmission Date: 20251021
  Serious: Yes (Hospitalization, Other)
  Sender: BAXTER
  Company Number: None

PATIENT
  Age: 70 Year
  Sex: Female
  Weight: 50 kg

DRUGS (13)
  1. CYCLOPHOSPHAMIDE [Suspect]
     Active Substance: CYCLOPHOSPHAMIDE
     Indication: Diffuse large B-cell lymphoma
     Dosage: 600 MG,QD
     Route: 041
     Dates: start: 20250813, end: 20250813
  2. RITUXIMAB [Suspect]
     Active Substance: RITUXIMAB
     Indication: Diffuse large B-cell lymphoma
     Dosage: 100 MG, QD (500 MG D1)
     Route: 041
     Dates: start: 20250811, end: 20250811
  3. RITUXIMAB [Suspect]
     Active Substance: RITUXIMAB
     Dosage: 400 MG ONCE DAILY (500 MG D1)
     Route: 041
     Dates: start: 20250811, end: 20250811
  4. MITOXANTRONE HYDROCHLORIDE [Suspect]
     Active Substance: MITOXANTRONE HYDROCHLORIDE
     Indication: Diffuse large B-cell lymphoma
     Dosage: 18 MG, QD, D3
     Route: 041
     Dates: start: 20250813, end: 20250813
  5. POLIVY [Suspect]
     Active Substance: POLATUZUMAB VEDOTIN-PIIQ
     Indication: Diffuse large B-cell lymphoma
     Dosage: 90 MG, QD D2
     Route: 041
     Dates: start: 20250812, end: 20250812
  6. PREDNISONE ACETATE [Suspect]
     Active Substance: PREDNISONE ACETATE
     Indication: Diffuse large B-cell lymphoma
     Dosage: 50 MG, BID
     Route: 048
     Dates: start: 20250811, end: 20250814
  7. DEXAMETHASONE SODIUM PHOSPHATE [Suspect]
     Active Substance: DEXAMETHASONE SODIUM PHOSPHATE
     Indication: Infusion related reaction
     Dosage: 5 MG, QD
     Route: 042
     Dates: start: 20250811, end: 20250811
  8. DEXAMETHASONE SODIUM PHOSPHATE [Suspect]
     Active Substance: DEXAMETHASONE SODIUM PHOSPHATE
     Indication: Prophylaxis
  9. LORATADINE [Suspect]
     Active Substance: LORATADINE
     Indication: Infusion related reaction
     Dosage: 10 MG, QD
     Route: 048
     Dates: start: 20250811, end: 20250811
  10. LORATADINE [Suspect]
     Active Substance: LORATADINE
     Indication: Prophylaxis
  11. DOLASETRON MESYLATE [Suspect]
     Active Substance: DOLASETRON MESYLATE
     Indication: Prophylaxis of nausea and vomiting
     Dosage: 100 MG,QD
     Route: 041
     Dates: start: 20250811, end: 20250813
  12. DIPHENHYDRAMINE HYDROCHLORIDE [Suspect]
     Active Substance: DIPHENHYDRAMINE HYDROCHLORIDE
     Indication: Infusion related reaction
     Dosage: 20 MG, QD
     Route: 030
     Dates: start: 20250811, end: 20250811
  13. DIPHENHYDRAMINE HYDROCHLORIDE [Suspect]
     Active Substance: DIPHENHYDRAMINE HYDROCHLORIDE
     Indication: Prophylaxis

REACTIONS (4)
  - Hyperpyrexia [Recovered/Resolved]
  - Myelosuppression [Unknown]
  - Neutrophil count decreased [Recovering/Resolving]
  - White blood cell count decreased [Recovering/Resolving]

NARRATIVE: CASE EVENT DATE: 20250821
